FAERS Safety Report 6318560-2 (Version None)
Quarter: 2009Q3

REPORT INFORMATION
  Report Type: 
  Country: None (occurrence: None)
  Receive Date: 20090819
  Receipt Date: 20090804
  Transmission Date: 20100115
  Serious: Yes (Disabling)
  Sender: FDA-Public Use
  Company Number: IDA-00217

PATIENT
  Age: 61 Year
  Sex: Male

DRUGS (3)
  1. PROPRANOLOL [Suspect]
     Indication: HYPERTENSION
     Dosage: 160MG DAILY, ORAL, TABLET
     Route: 048
     Dates: start: 19890101
  2. VALSARTAN AND HYDROCHLOROTHIAZIDE [Concomitant]
  3. OLMESARTAN MEDOXOMIL [Concomitant]

REACTIONS (3)
  - INFECTION [None]
  - OSTEONECROSIS [None]
  - RAYNAUD'S PHENOMENON [None]
